FAERS Safety Report 7909170-1 (Version None)
Quarter: 2011Q4

REPORT INFORMATION
  Report Type: 
  Country: None (occurrence: None)
  Receive Date: 20111111
  Receipt Date: 20110427
  Transmission Date: 20120403
  Serious: No
  Sender: FDA-Public Use
  Company Number: US-GLAXOSMITHKLINE-A0924761A

PATIENT
  Age: 85 Year
  Sex: Male

DRUGS (5)
  1. ULORIC [Concomitant]
  2. NORVASC [Concomitant]
  3. COREG [Suspect]
     Indication: HYPERTENSION
     Dosage: 3.125MG TWICE PER DAY
     Route: 048
     Dates: start: 20110408
  4. HYDRALAZINE HCL [Concomitant]
  5. TERAZOSIN HCL [Concomitant]

REACTIONS (2)
  - HYPERURICAEMIA [None]
  - GOUT [None]
